FAERS Safety Report 11255472 (Version 1)
Quarter: 2015Q3

REPORT INFORMATION
  Report Type: Spontaneous
  Country: BE (occurrence: BE)
  Receive Date: 20150709
  Receipt Date: 20150709
  Transmission Date: 20151125
  Serious: Yes (Hospitalization)
  Sender: FDA-Public Use
  Company Number: BE-PERRIGO-15BE006751

PATIENT
  Age: 23 Year
  Sex: Male

DRUGS (2)
  1. URSODEOXYCHOLIC ACID [Concomitant]
     Active Substance: URSODIOL
     Indication: CHOLANGITIS SCLEROSING
     Dosage: UNKNOWN, UNKNOWN
     Route: 065
  2. MESALAMINE RX 66.667 MG/ML 2N9 [Suspect]
     Active Substance: MESALAMINE
     Indication: PROCTITIS ULCERATIVE
     Dosage: UNKNOWN, UNKNOWN
     Route: 054
     Dates: start: 2009

REACTIONS (2)
  - Eosinophilic colitis [Recovered/Resolved]
  - Toxicity to various agents [Recovered/Resolved]
